FAERS Safety Report 12870233 (Version 6)
Quarter: 2018Q1

REPORT INFORMATION
  Report Type: Report from Study
  Country: JP (occurrence: JP)
  Receive Date: 20161021
  Receipt Date: 20180305
  Transmission Date: 20180508
  Serious: Yes (Hospitalization, Other)
  Sender: FDA-Public Use
  Company Number: JP-AMGEN-JPNCT2016142424

PATIENT
  Age: 78 Year
  Sex: Male
  Weight: 44 kg

DRUGS (27)
  1. MINOCYCLINE HYDROCHLORIDE. [Concomitant]
     Active Substance: MINOCYCLINE HYDROCHLORIDE
     Indication: PROPHYLAXIS
     Dosage: 50 MG, UNK
     Route: 048
     Dates: start: 20160908
  2. MAGNESIUM OXIDE. [Concomitant]
     Active Substance: MAGNESIUM OXIDE
     Indication: CONSTIPATION
     Dosage: UNK
     Route: 048
  3. OXALIPLATIN. [Suspect]
     Active Substance: OXALIPLATIN
     Dosage: 90 MG, Q2WEEKS
     Route: 041
     Dates: start: 20161201, end: 20170302
  4. CALCIUM LEVOFOLINATE [Concomitant]
     Active Substance: LEVOLEUCOVORIN CALCIUM
     Dosage: 270 MG, Q2WEEKS
     Route: 041
     Dates: start: 20161020, end: 20170302
  5. LAFUTIDINE [Concomitant]
     Active Substance: LAFUTIDINE
     Indication: GASTRITIS
  6. FLUOROURACIL. [Suspect]
     Active Substance: FLUOROURACIL
     Indication: COLON CANCER
     Dosage: 540 MG, Q2WK
     Route: 040
     Dates: start: 20160908, end: 20160923
  7. FLUOROURACIL. [Suspect]
     Active Substance: FLUOROURACIL
     Dosage: 3200 MG, Q2WK
     Route: 041
     Dates: start: 20160908, end: 20160923
  8. LAFUTIDINE [Concomitant]
     Active Substance: LAFUTIDINE
     Indication: STOMATITIS
     Dosage: 10 MG, UNK
     Route: 048
     Dates: start: 20160908
  9. TRAMADOL HYDROCHLORIDE. [Concomitant]
     Active Substance: TRAMADOL HYDROCHLORIDE
     Indication: BACK PAIN
     Dosage: 100 MG, UNK
     Route: 048
  10. PANITUMUMAB [Suspect]
     Active Substance: PANITUMUMAB
     Indication: COLON CANCER
     Dosage: 250 MG, Q2WK
     Route: 041
     Dates: start: 20160908, end: 20160923
  11. PANITUMUMAB [Suspect]
     Active Substance: PANITUMUMAB
     Dosage: 250 MG, Q2WK
     Route: 041
     Dates: start: 20161020, end: 20170302
  12. FLUOROURACIL. [Suspect]
     Active Substance: FLUOROURACIL
     Dosage: 540 MG, Q2WEEKS
     Route: 040
     Dates: start: 20161020, end: 20170302
  13. OXALIPLATIN. [Suspect]
     Active Substance: OXALIPLATIN
     Dosage: 270 MG, Q2WEEKS
     Route: 041
     Dates: start: 20161020, end: 20161117
  14. TULOBUTEROL [Concomitant]
     Active Substance: TULOBUTEROL
     Indication: OBSTRUCTIVE AIRWAYS DISORDER
     Dosage: 2 MG, UNK
     Route: 062
     Dates: start: 20160708
  15. LAFUTIDINE [Concomitant]
     Active Substance: LAFUTIDINE
     Indication: PROPHYLAXIS
  16. FLUOROURACIL. [Suspect]
     Active Substance: FLUOROURACIL
     Dosage: 3200 MG, Q2WEEKS
     Route: 041
     Dates: start: 20161020, end: 20170304
  17. LAFUTIDINE [Concomitant]
     Active Substance: LAFUTIDINE
     Indication: GASTRITIS PROPHYLAXIS
  18. LAFUTIDINE [Concomitant]
     Active Substance: LAFUTIDINE
     Indication: PROPHYLAXIS
  19. HEPARIN SODIUM. [Concomitant]
     Active Substance: HEPARIN SODIUM
     Indication: CATHETER MANAGEMENT
     Dosage: 100 IU, UNK
     Route: 042
     Dates: start: 20160908
  20. REBAMIPIDE [Concomitant]
     Active Substance: REBAMIPIDE
     Indication: BACK PAIN
     Dosage: 100 MG, BID
     Route: 048
  21. LANSOPRAZOLE. [Concomitant]
     Active Substance: LANSOPRAZOLE
     Indication: PROPHYLAXIS AGAINST GASTROINTESTINAL ULCER
     Dosage: 30 MG, UNK
     Route: 048
  22. LOXOPROFEN SODIUM [Concomitant]
     Active Substance: LOXOPROFEN SODIUM
     Indication: BACK PAIN
     Dosage: 60 MG, BID
     Route: 048
  23. REBAMIPIDE [Concomitant]
     Active Substance: REBAMIPIDE
     Dosage: 100 MG, BID
     Route: 048
  24. CALCIUM LEVOFOLINATE [Concomitant]
     Active Substance: LEVOLEUCOVORIN CALCIUM
     Indication: COLON CANCER
     Dosage: 270 MG, Q2WEEKS
     Route: 041
     Dates: start: 20160908, end: 20160923
  25. LAFUTIDINE [Concomitant]
     Active Substance: LAFUTIDINE
     Indication: GASTRITIS
     Dosage: 10 MG, UNK
     Route: 048
     Dates: start: 20160908
  26. OXALIPLATIN. [Suspect]
     Active Substance: OXALIPLATIN
     Indication: COLON CANCER
     Dosage: 270 MG, Q2WEEKS
     Route: 041
     Dates: start: 20160908, end: 20160923
  27. FLUDROXYCORTIDE [Concomitant]
     Indication: PARONYCHIA
     Dosage: 4 MUG, UNK
     Route: 062

REACTIONS (6)
  - Hypoxia [Recovered/Resolved]
  - C-reactive protein increased [Recovered/Resolved]
  - Paronychia [Recovering/Resolving]
  - Pneumonia [Recovered/Resolved]
  - Peripheral sensory neuropathy [Recovering/Resolving]
  - Lung disorder [Recovering/Resolving]

NARRATIVE: CASE EVENT DATE: 20161006
